FAERS Safety Report 7368311-8 (Version None)
Quarter: 2011Q1

REPORT INFORMATION
  Report Type: 
  Country: None (occurrence: None)
  Receive Date: 20110311
  Receipt Date: 20110225
  Transmission Date: 20110831
  Serious: Yes (Life-Threatening, Other)
  Sender: FDA-Public Use
  Company Number: ACO_21950_2011

PATIENT
  Age: 67 Year
  Sex: Male
  Weight: 72.6 kg

DRUGS (13)
  1. IMITREX /01044801/ (SUMATRIPTAN) [Concomitant]
  2. SIMVASTATIN [Concomitant]
  3. AMPYRA [Suspect]
     Indication: PRODUCT USED FOR UNKNOWN INDICATION
     Dosage: 10 MG, BID, ORAL
     Route: 048
     Dates: start: 20100514, end: 20110201
  4. AMPYRA [Suspect]
  5. ENABLEX [Concomitant]
  6. MIRALAX [Concomitant]
  7. CITALOPRAM (CITALOPRAM) [Concomitant]
  8. BACLOFEN [Concomitant]
  9. NALTREXONE HYDROCHLORIDE [Concomitant]
  10. AMPYRA [Suspect]
  11. DILTIAZEM [Concomitant]
  12. HYDROCHLOROTHIAZIDE [Concomitant]
  13. FLOMAX	/00889901/ (MORNIFLUMATE) [Concomitant]

REACTIONS (3)
  - DRUG INEFFECTIVE [None]
  - DEPRESSION [None]
  - SUICIDAL IDEATION [None]
